FAERS Safety Report 9188928 (Version 1)
Quarter: 2013Q1

REPORT INFORMATION
  Report Type: Spontaneous
  Country: US (occurrence: US)
  Receive Date: 20130326
  Receipt Date: 20130326
  Transmission Date: 20140127
  Serious: No
  Sender: FDA-Public Use
  Company Number: US-009507513-1303USA012242

PATIENT
  Sex: Male

DRUGS (2)
  1. COPPERTONE SPORT CONTINUOUS SPRAY SPF 70 [Suspect]
     Indication: PRODUCT USED FOR UNKNOWN INDICATION
     Route: 061
  2. DIETHYLTOLUAMIDE [Suspect]
     Indication: PRODUCT USED FOR UNKNOWN INDICATION
     Route: 061

REACTIONS (2)
  - Sunburn [Unknown]
  - Skin discolouration [Unknown]
